FAERS Safety Report 9345104 (Version 1)
Quarter: 2013Q2

REPORT INFORMATION
  Report Type: Spontaneous
  Country: AT (occurrence: AT)
  Receive Date: 20130612
  Receipt Date: 20130612
  Transmission Date: 20140414
  Serious: Yes (Other)
  Sender: FDA-Public Use
  Company Number: AT-PFIZER INC-2013171889

PATIENT
  Age: 20 Year
  Sex: Male

DRUGS (1)
  1. REFACTO AF [Suspect]
     Dosage: UNK

REACTIONS (1)
  - Factor VIII inhibition [Unknown]
